FAERS Safety Report 6593912-4 (Version None)
Quarter: 2010Q1

REPORT INFORMATION
  Report Type: 
  Country: None (occurrence: None)
  Receive Date: 20100222
  Receipt Date: 20100217
  Transmission Date: 20100710
  Serious: Yes (Death, Other)
  Sender: FDA-Public Use
  Company Number: PHEH2009US17132

PATIENT
  Sex: Male

DRUGS (5)
  1. ZOMETA [Suspect]
     Indication: METASTASES TO BONE
     Dosage: 4 MG, UNK
     Route: 042
     Dates: start: 20080130, end: 20080404
  2. TAXOTERE [Concomitant]
     Dosage: UNK
     Dates: start: 20071219, end: 20080130
  3. CARBOPLATIN [Concomitant]
     Dosage: UNK
     Dates: start: 20071219, end: 20080130
  4. ALIMTA [Concomitant]
     Dosage: UNK
     Dates: start: 20080404, end: 20080404
  5. RADIATION THERAPY [Concomitant]

REACTIONS (3)
  - DEATH [None]
  - HAEMOGLOBIN DECREASED [None]
  - MALIGNANT NEOPLASM PROGRESSION [None]
